FAERS Safety Report 4498249-5 (Version None)
Quarter: 2004Q4

REPORT INFORMATION
  Report Type: 
  Country: None (occurrence: None)
  Receive Date: 20040927
  Receipt Date: 20040609
  Transmission Date: 20050328
  Serious: No
  Sender: FDA-Public Use
  Company Number: USA040669741

PATIENT
  Age: 11 Year
  Sex: Male
  Weight: 59 kg

DRUGS (3)
  1. STRATTERA [Suspect]
     Indication: ATTENTION DEFICIT/HYPERACTIVITY DISORDER
     Dosage: 10 MG DAY
     Dates: start: 20031026
  2. EFFEXOR [Concomitant]
  3. ZOLOFT [Concomitant]

REACTIONS (7)
  - ABNORMAL BEHAVIOUR [None]
  - BIRTH MARK [None]
  - CRYING [None]
  - DISTURBANCE IN ATTENTION [None]
  - IRRITABILITY [None]
  - MOOD ALTERED [None]
  - VEIN DISCOLOURATION [None]
